FAERS Safety Report 16070213 (Version 1)
Quarter: 2019Q1

REPORT INFORMATION
  Report Type: Spontaneous
  Country: US (occurrence: US)
  Receive Date: 20190314
  Receipt Date: 20190314
  Transmission Date: 20190418
  Serious: No
  Sender: FDA-Public Use
  Company Number: US-TEVA-2019-US-1012888

PATIENT
  Age: 62 Year
  Sex: Female

DRUGS (3)
  1. CARVEDILOL TABLETS [Suspect]
     Active Substance: CARVEDILOL
     Indication: BLOOD PRESSURE ABNORMAL
     Route: 065
  2. CARVEDILOL TABLETS [Suspect]
     Active Substance: CARVEDILOL
     Indication: HEART RATE INCREASED
  3. BYSTOLIC [Suspect]
     Active Substance: NEBIVOLOL HYDROCHLORIDE
     Route: 065

REACTIONS (5)
  - Lethargy [Unknown]
  - Product substitution issue [Unknown]
  - Depression [Unknown]
  - Alopecia [Unknown]
  - Asthenia [Unknown]
